FAERS Safety Report 7490828-6 (Version None)
Quarter: 2011Q2

REPORT INFORMATION
  Report Type: 
  Country: None (occurrence: None)
  Receive Date: 20110517
  Receipt Date: 20110517
  Transmission Date: 20111010
  Serious: Yes (Other)
  Sender: FDA-Public Use
  Company Number: None

PATIENT
  Age: 37 Year
  Sex: Male
  Weight: 83.4619 kg

DRUGS (1)
  1. HEPARIN SODIUM [Suspect]
     Indication: CORONARY ARTERIAL STENT INSERTION
     Dosage: 5000 UNITS SINGLE BOLUS IV BOLUS
     Route: 040
     Dates: start: 20110516, end: 20110516

REACTIONS (1)
  - PROTHROMBIN TIME RATIO DECREASED [None]
